FAERS Safety Report 4699332-1 (Version None)
Quarter: 2005Q2

REPORT INFORMATION
  Report Type: 
  Country: None (occurrence: None)
  Receive Date: 20050624
  Receipt Date: 20050610
  Transmission Date: 20051028
  Serious: Yes (Other)
  Sender: FDA-Public Use
  Company Number: CN-GLAXOSMITHKLINE-B0384883A

PATIENT
  Age: 64 Year
  Sex: Male

DRUGS (1)
  1. HEPTODIN [Suspect]
     Indication: HEPATITIS B
     Route: 048
     Dates: start: 20000101

REACTIONS (3)
  - ALANINE AMINOTRANSFERASE INCREASED [None]
  - HBV DNA INCREASED [None]
  - HEPATITIS B VIRUS [None]
